FAERS Safety Report 18473086 (Version 2)
Quarter: 2020Q4

REPORT INFORMATION
  Report Type: Spontaneous
  Country: CO (occurrence: CO)
  Receive Date: 20201106
  Receipt Date: 20201211
  Transmission Date: 20210114
  Serious: Yes (Other)
  Sender: FDA-Public Use
  Company Number: NVSC2020CO296858

PATIENT
  Age: 30 Year
  Sex: Female

DRUGS (8)
  1. CEFALEXIN [Suspect]
     Active Substance: CEPHALEXIN
     Indication: URINARY TRACT INFECTION
     Dosage: 500 UG, Q8H
     Route: 048
  2. METOPROLOL. [Suspect]
     Active Substance: METOPROLOL
     Indication: SINUS TACHYCARDIA
     Dosage: 25 MG, Q12H
     Route: 048
  3. PROGESTERONE. [Suspect]
     Active Substance: PROGESTERONE
     Indication: SHORTENED CERVIX
     Dosage: 200 UG, QD
     Route: 048
  4. ACETYLSALICYLIC ACID [Suspect]
     Active Substance: ASPIRIN
     Indication: PRE-ECLAMPSIA
     Dosage: 100 MG, QD
     Route: 065
  5. NITROFURANTOIN. [Suspect]
     Active Substance: NITROFURANTOIN
     Indication: URINARY TRACT INFECTION
     Dosage: 100 UG, Q8H
     Route: 048
  6. PROGESTERONE. [Suspect]
     Active Substance: PROGESTERONE
     Dosage: 200 UG, QD
     Route: 067
  7. MULTI-VIT [Suspect]
     Active Substance: VITAMINS
     Indication: PRODUCT USED FOR UNKNOWN INDICATION
     Dosage: UNK
     Route: 065
  8. CALCIUM [Suspect]
     Active Substance: CALCIUM
     Indication: PRE-ECLAMPSIA
     Dosage: 1200 MG, QD
     Route: 048

REACTIONS (3)
  - Foetal growth restriction [Recovered/Resolved]
  - Maternal exposure during pregnancy [Unknown]
  - Normal newborn [Unknown]
